FAERS Safety Report 12825901 (Version 1)
Quarter: 2016Q4

REPORT INFORMATION
  Report Type: Spontaneous
  Country: US (occurrence: US)
  Receive Date: 20161006
  Receipt Date: 20161006
  Transmission Date: 20170207
  Serious: No
  Sender: FDA-Public Use
  Company Number: US-AMGEN-USASP2016017472

PATIENT
  Age: 77 Year
  Sex: Female

DRUGS (1)
  1. VECTIBIX [Suspect]
     Active Substance: PANITUMUMAB
     Indication: COLORECTAL CANCER METASTATIC
     Dosage: UNK, UNK
     Route: 065
     Dates: start: 201507

REACTIONS (1)
  - Furuncle [Unknown]

NARRATIVE: CASE EVENT DATE: 201510
